FAERS Safety Report 13644965 (Version 1)
Quarter: 2017Q2

REPORT INFORMATION
  Report Type: Spontaneous
  Country: US (occurrence: US)
  Receive Date: 20170612
  Receipt Date: 20170612
  Transmission Date: 20170830
  Serious: No
  Sender: FDA-Public Use
  Company Number: US-ROCHE-1457549

PATIENT
  Sex: Female

DRUGS (2)
  1. XELODA [Suspect]
     Active Substance: CAPECITABINE
     Indication: BREAST CANCER
     Dosage: FOR 1 WEEK FOR 14 DAYS
     Route: 065
     Dates: start: 20130615
  2. XELODA [Suspect]
     Active Substance: CAPECITABINE
     Indication: BONE NEOPLASM

REACTIONS (1)
  - Fatigue [Not Recovered/Not Resolved]
